FAERS Safety Report 13086314 (Version 1)
Quarter: 2017Q1

REPORT INFORMATION
  Report Type: Spontaneous
  Country: US (occurrence: US)
  Receive Date: 20170104
  Receipt Date: 20170104
  Transmission Date: 20170428
  Serious: No
  Sender: FDA-Public Use
  Company Number: US-AVEDRO, INC.-1061536

PATIENT
  Age: 23 Year
  Sex: Male

DRUGS (5)
  1. KXL SYSTEM, UVA LIGHT SOURCE FOR CORNEAL CROSS-LINKING [Suspect]
     Active Substance: DEVICE
     Route: 047
     Dates: start: 20160928, end: 20160928
  2. BETADINE [Concomitant]
     Active Substance: POVIDONE-IODINE
     Route: 047
     Dates: start: 20160928, end: 20160928
  3. PROPARACAINE HYDROCHLORIDE. [Concomitant]
     Active Substance: PROPARACAINE HYDROCHLORIDE
     Route: 047
     Dates: start: 20160928, end: 20160928
  4. PHOTREXA [Suspect]
     Active Substance: RIBOFLAVIN 5^-PHOSPHATE SODIUM
     Route: 047
     Dates: start: 20160928, end: 20160928
  5. PHOTREXA VISCOUS [Suspect]
     Active Substance: RIBOFLAVIN 5^-PHOSPHATE SODIUM
     Indication: KERATOCONUS
     Route: 047
     Dates: start: 20160928, end: 20160928

REACTIONS (4)
  - Therapeutic response decreased [Recovered/Resolved]
  - Intentional device use issue [None]
  - Corneal thinning [Recovered/Resolved]
  - Inappropriate schedule of drug administration [None]

NARRATIVE: CASE EVENT DATE: 20160928
